FAERS Safety Report 19850205 (Version 1)
Quarter: 2021Q3

REPORT INFORMATION
  Report Type: Spontaneous
  Country: HR (occurrence: HR)
  Receive Date: 20210917
  Receipt Date: 20210917
  Transmission Date: 20211014
  Serious: Yes (Other)
  Sender: FDA-Public Use
  Company Number: HR-PFIZER INC-202101166497

PATIENT
  Sex: Female

DRUGS (5)
  1. IBANDRONATE [Suspect]
     Active Substance: IBANDRONATE SODIUM
     Dosage: UNK
  2. ANASTROZOLE. [Suspect]
     Active Substance: ANASTROZOLE
     Dosage: UNK
  3. LETROZOLE. [Suspect]
     Active Substance: LETROZOLE
     Dosage: UNK
  4. ZOLEDRONIC ACID [Suspect]
     Active Substance: ZOLEDRONIC ACID
     Dosage: UNK
  5. VERZENIOS [Suspect]
     Active Substance: ABEMACICLIB
     Dosage: 150 MG, 2X/DAY
     Dates: start: 202107

REACTIONS (4)
  - C-reactive protein increased [Unknown]
  - Bone pain [Unknown]
  - Rash pruritic [Unknown]
  - Pyrexia [Not Recovered/Not Resolved]
